FAERS Safety Report 21639146 (Version 1)
Quarter: 2022Q4

REPORT INFORMATION
  Report Type: Spontaneous
  Country: PT (occurrence: PT)
  Receive Date: 20221124
  Receipt Date: 20221124
  Transmission Date: 20230113
  Serious: Yes (Other)
  Sender: FDA-Public Use
  Company Number: PT-MYLANLABS-2022M1125656

PATIENT
  Age: 73 Year
  Sex: Female
  Weight: 63 kg

DRUGS (6)
  1. CLARITHROMYCIN [Suspect]
     Active Substance: CLARITHROMYCIN
     Indication: Tooth infection
     Dosage: 500 MILLIGRAM, HS (1 TABLET A DAY AT NIGHT)
     Route: 048
     Dates: start: 20221107, end: 20221109
  2. OMEPRAZOLE [Concomitant]
     Active Substance: OMEPRAZOLE
     Indication: Prophylaxis
     Dosage: 20 MILLIGRAM, QD
     Route: 048
  3. TRAZODONE HYDROCHLORIDE [Concomitant]
     Active Substance: TRAZODONE HYDROCHLORIDE
     Indication: Sleep disorder
     Dosage: 150 MILLIGRAM, QD
     Route: 048
  4. ALPRAZOLAM [Concomitant]
     Active Substance: ALPRAZOLAM
     Indication: Sleep disorder
     Dosage: 0.5 MILLIGRAM, QD
     Route: 048
  5. ATORVASTATIN [Concomitant]
     Active Substance: ATORVASTATIN
     Indication: Blood cholesterol increased
     Dosage: 20 MILLIGRAM, QD
     Route: 048
  6. MEXAZOLAM [Concomitant]
     Active Substance: MEXAZOLAM
     Indication: Sleep disorder
     Dosage: 1 MILLIGRAM, UNK
     Route: 048

REACTIONS (10)
  - Syncope [Recovered/Resolved]
  - Throat tightness [Recovered/Resolved]
  - Aphonia [Recovered/Resolved]
  - Yellow skin [Recovered/Resolved]
  - Pharyngeal erythema [Recovered/Resolved]
  - Diarrhoea [Recovered/Resolved]
  - Dysgeusia [Recovered/Resolved]
  - Tongue discolouration [Recovered/Resolved]
  - Fatigue [Recovered/Resolved]
  - Off label use [Unknown]

NARRATIVE: CASE EVENT DATE: 20221107
